FAERS Safety Report 5934531-X (Version None)
Quarter: 2008Q4

REPORT INFORMATION
  Report Type: 
  Country: None (occurrence: None)
  Receive Date: 20081029
  Receipt Date: 20080908
  Transmission Date: 20090506
  Serious: Yes (Death, Life-Threatening, Hospitalization)
  Sender: FDA-Public Use
  Company Number: SE-PFIZER INC-2008075095

PATIENT
  Age: 82 Year
  Sex: Female

DRUGS (4)
  1. SPIRONOLACTONE [Suspect]
  2. ASPIRIN [Suspect]
  3. PLAVIX [Suspect]
  4. DIGOXIN [Suspect]

REACTIONS (4)
  - ANGINA PECTORIS [None]
  - BLOOD POTASSIUM INCREASED [None]
  - CARDIOACTIVE DRUG LEVEL INCREASED [None]
  - GASTROINTESTINAL HAEMORRHAGE [None]
